FAERS Safety Report 5520690-X (Version None)
Quarter: 2007Q4

REPORT INFORMATION
  Report Type: 
  Country: None (occurrence: None)
  Receive Date: 20071119
  Receipt Date: 20071106
  Transmission Date: 20080405
  Serious: Yes (Other)
  Sender: FDA-Public Use
  Company Number: AU-PFIZER INC-2007093977

PATIENT
  Sex: Female

DRUGS (1)
  1. ZOLOFT [Suspect]

REACTIONS (3)
  - PARAESTHESIA [None]
  - TEARFULNESS [None]
  - WEIGHT INCREASED [None]
